FAERS Safety Report 5339619-2 (Version None)
Quarter: 2007Q2

REPORT INFORMATION
  Report Type: 
  Country: None (occurrence: None)
  Receive Date: 20070525
  Receipt Date: 20070425
  Transmission Date: 20071010
  Serious: Yes (Death)
  Sender: FDA-Public Use
  Company Number: 2007000745

PATIENT
  Age: 64 Year
  Sex: Male
  Weight: 67.6 kg

DRUGS (6)
  1. ERLOTINIB (TABLET) [Suspect]
     Indication: NON-SMALL CELL LUNG CANCER
     Dosage: 150 MG (QD), ORAL
     Route: 048
  2. BEVACIZUMAB (INJECTION FOR INFUSION) [Suspect]
     Indication: NON-SMALL CELL LUNG CANCER
     Dosage: 15 MG/KG (Q 3 W), INTRAVENOUS
     Route: 042
     Dates: end: 20070405
  3. HYDROCODONE (HYDROCODONE) [Concomitant]
  4. IMODIUM [Concomitant]
  5. PROCHLORPERAZINE MALEATE [Concomitant]
  6. MEGACE [Concomitant]

REACTIONS (2)
  - CARDIO-RESPIRATORY ARREST [None]
  - PNEUMONIA [None]
